FAERS Safety Report 8517654-0 (Version None)
Quarter: 2012Q3

REPORT INFORMATION
  Report Type: 
  Country: None (occurrence: None)
  Receive Date: 20120718
  Receipt Date: 20120707
  Transmission Date: 20120928
  Serious: No
  Sender: FDA-Public Use
  Company Number: CA-JNJFOC-20120704089

PATIENT
  Sex: Male
  Weight: 61 kg

DRUGS (2)
  1. SYMBICORT [Concomitant]
     Route: 065
  2. REMICADE [Suspect]
     Indication: CROHN'S DISEASE
     Route: 042
     Dates: start: 20090201

REACTIONS (1)
  - UPPER RESPIRATORY TRACT INFECTION [None]
